FAERS Safety Report 17463817 (Version 1)
Quarter: 2020Q1

REPORT INFORMATION
  Report Type: Spontaneous
  Country: FR (occurrence: FR)
  Receive Date: 20200226
  Receipt Date: 20200226
  Transmission Date: 20200409
  Serious: Yes (Life-Threatening)
  Sender: FDA-Public Use
  Company Number: FR-MYLANLABS-2020M1020714

PATIENT
  Age: 47 Year
  Sex: Male
  Weight: 99 kg

DRUGS (2)
  1. SERTRALINE [Suspect]
     Active Substance: SERTRALINE HYDROCHLORIDE
     Indication: PRODUCT USED FOR UNKNOWN INDICATION
     Dosage: NON PR?CIS?
     Route: 048
     Dates: start: 20191228, end: 20191228
  2. LORMETAZEPAM [Suspect]
     Active Substance: LORMETAZEPAM
     Indication: PRODUCT USED FOR UNKNOWN INDICATION
     Dosage: NON PR?CIS?
     Route: 048
     Dates: start: 20191228, end: 20191228

REACTIONS (2)
  - Toxicity to various agents [Unknown]
  - Coma [Recovered/Resolved]

NARRATIVE: CASE EVENT DATE: 20191228
